FAERS Safety Report 9554589 (Version 1)
Quarter: 2013Q3

REPORT INFORMATION
  Report Type: Spontaneous
  Country: US (occurrence: US)
  Receive Date: 20130925
  Receipt Date: 20130925
  Transmission Date: 20140515
  Serious: Yes (Other)
  Sender: FDA-Public Use
  Company Number: US-MYLANLABS-2013S1020884

PATIENT
  Age: 71 Year
  Sex: Female
  Weight: 74 kg

DRUGS (13)
  1. DEXMEDETOMIDINE [Suspect]
     Indication: MAINTENANCE OF ANAESTHESIA
     Dosage: 0.42MCG/KG/H INFUSION WITHOUT BOLUS
     Route: 050
  2. FELODIPINE [Suspect]
     Indication: HYPERTENSION
     Route: 065
  3. LEVOTHYROXINE SODIUM [Suspect]
     Indication: HYPOTHYROIDISM
     Route: 065
  4. ARIPIPRAZOLE [Concomitant]
     Route: 065
  5. FENTANYL [Concomitant]
     Indication: INDUCTION OF ANAESTHESIA
     Dosage: 100MCG
     Route: 065
  6. PROPOFOL [Concomitant]
     Indication: INDUCTION OF ANAESTHESIA
     Dosage: 150MG
     Route: 065
  7. ROCURONIUM BROMIDE [Concomitant]
     Indication: INDUCTION OF ANAESTHESIA
     Dosage: 100MG
     Route: 065
  8. SEVOFLURANE [Concomitant]
     Indication: MAINTENANCE OF ANAESTHESIA
     Route: 065
  9. REMIFENTANIL [Concomitant]
     Indication: MAINTENANCE OF ANAESTHESIA
     Dosage: 0.1MCG/KG/MIN INFUSION
     Route: 050
  10. LACTATED RINGERS [Concomitant]
     Dosage: 4L
     Route: 065
  11. PHENYLEPHRINE [Concomitant]
     Dosage: INFUSION
     Route: 050
  12. MIDAZOLAM [Concomitant]
     Indication: PREOPERATIVE CARE
     Dosage: 2MG
     Route: 065
  13. TETRASTARCH [Concomitant]
     Dosage: 500ML
     Route: 065

REACTIONS (2)
  - Hypernatraemia [Recovered/Resolved]
  - Polyuria [Recovering/Resolving]
